FAERS Safety Report 8087936-8 (Version None)
Quarter: 2012Q1

REPORT INFORMATION
  Report Type: 
  Country: None (occurrence: None)
  Receive Date: 20120130
  Receipt Date: 20120119
  Transmission Date: 20120608
  Serious: Yes (Other)
  Sender: FDA-Public Use
  Company Number: US-ASTRAZENECA-2012SE04278

PATIENT
  Age: 61 Year
  Sex: Female

DRUGS (2)
  1. ATACAND HCT [Suspect]
     Route: 048
  2. ARIMIDEX [Concomitant]

REACTIONS (2)
  - BREAST CANCER FEMALE [None]
  - BREAST CANCER [None]
